FAERS Safety Report 24281273 (Version 1)
Quarter: 2024Q3

REPORT INFORMATION
  Report Type: Spontaneous
  Country: ES (occurrence: ES)
  Receive Date: 20240904
  Receipt Date: 20240904
  Transmission Date: 20241016
  Serious: Yes (Life-Threatening, Hospitalization, Other)
  Sender: GLAND PHARMA
  Company Number: ES-GLANDPHARMA-ES-2024GLNLIT00709

PATIENT
  Age: 18 Year
  Sex: Male

DRUGS (4)
  1. CARBOPLATIN [Suspect]
     Active Substance: CARBOPLATIN
     Indication: Metastases to meninges
     Route: 065
     Dates: start: 201903, end: 201905
  2. VINCRISTINE [Suspect]
     Active Substance: VINCRISTINE
     Indication: Metastases to meninges
     Route: 065
     Dates: start: 201903, end: 201905
  3. VINBLASTINE [Concomitant]
     Active Substance: VINBLASTINE
     Indication: Neoplasm progression
     Route: 065
     Dates: start: 2016
  4. LEVETIRACETAM [Concomitant]
     Active Substance: LEVETIRACETAM
     Indication: Seizure
     Route: 065

REACTIONS (7)
  - Neutropenia [Recovered/Resolved]
  - Fatigue [Recovered/Resolved]
  - Peripheral sensorimotor neuropathy [Recovered/Resolved]
  - Hydrocephalus [Recovered/Resolved]
  - Thrombocytopenia [Recovered/Resolved]
  - Constipation [Recovered/Resolved]
  - Product use in unapproved indication [Unknown]
